FAERS Safety Report 7824617-7 (Version None)
Quarter: 2011Q4

REPORT INFORMATION
  Report Type: 
  Country: None (occurrence: None)
  Receive Date: 20111019
  Receipt Date: 20111007
  Transmission Date: 20120403
  Serious: Yes (Death, Hospitalization)
  Sender: FDA-Public Use
  Company Number: JP-EISAI INC-E7389-01536-SPO-JP

PATIENT
  Age: 46 Year
  Sex: Female
  Weight: 50 kg

DRUGS (4)
  1. HALAVEN [Suspect]
     Indication: METASTASES TO LUNG
  2. HALAVEN [Suspect]
     Indication: METASTASES TO LIVER
  3. HALAVEN [Suspect]
     Indication: BREAST CANCER
     Route: 041
     Dates: start: 20110825, end: 20110825
  4. HALAVEN [Suspect]
     Indication: METASTASES TO BONE
     Route: 041
     Dates: start: 20110811, end: 20110811

REACTIONS (2)
  - PLEURAL EFFUSION [None]
  - NEOPLASM MALIGNANT [None]
